FAERS Safety Report 9368535 (Version 5)
Quarter: 2015Q4

REPORT INFORMATION
  Report Type: Spontaneous
  Country: US (occurrence: US)
  Receive Date: 20130625
  Receipt Date: 20151001
  Transmission Date: 20160305
  Serious: Yes (Death, Hospitalization)
  Sender: FDA-Public Use
  Company Number: US-PFIZER INC-2013184832

PATIENT
  Age: 28 Year
  Sex: Female
  Weight: 70 kg

DRUGS (10)
  1. METAXALONE. [Suspect]
     Active Substance: METAXALONE
     Indication: LIGAMENT SPRAIN
  2. IBUPROFEN. [Suspect]
     Active Substance: IBUPROFEN
     Indication: LIGAMENT SPRAIN
  3. VALDECOXIB [Suspect]
     Active Substance: VALDECOXIB
     Indication: CONTUSION
     Dosage: 10 MG, DAILY
  4. METHOCARBAMOL. [Suspect]
     Active Substance: METHOCARBAMOL
     Indication: LIGAMENT SPRAIN
  5. METAXALONE. [Suspect]
     Active Substance: METAXALONE
     Indication: CONTUSION
     Dosage: 800 MG (THRICE DAILY, #15) ON DAY 10
  6. IBUPROFEN. [Suspect]
     Active Substance: IBUPROFEN
     Indication: CONTUSION
     Dosage: 800 MG (THRICE DAILY, #30) ON DAY 1
  7. VALDECOXIB [Suspect]
     Active Substance: VALDECOXIB
     Indication: LIGAMENT SPRAIN
  8. METHOCARBAMOL. [Suspect]
     Active Substance: METHOCARBAMOL
     Indication: CONTUSION
     Dosage: 750 MG (4 PER DAY, #30) ON DAY 16
  9. CYCLOBENZAPRINE [Concomitant]
     Active Substance: CYCLOBENZAPRINE
     Indication: CONTUSION
     Dosage: 10 MG (NIGHTLY, #30)
  10. CYCLOBENZAPRINE [Concomitant]
     Active Substance: CYCLOBENZAPRINE
     Indication: LIGAMENT SPRAIN

REACTIONS (15)
  - Overdose [Fatal]
  - Haemorrhage intracranial [Fatal]
  - Hypertension [Fatal]
  - Diabetes mellitus [Fatal]
  - Secondary hypertension [Fatal]
  - Cardiomyopathy [Fatal]
  - Renal failure [Fatal]
  - Respiratory failure [Fatal]
  - Coma [Fatal]
  - Glomerulonephritis [Fatal]
  - Gastritis [Unknown]
  - Medication error [Fatal]
  - Menorrhagia [Fatal]
  - Drug prescribing error [Fatal]
  - Toxicity to various agents [Fatal]
